FAERS Safety Report 10933775 (Version 1)
Quarter: 2015Q1

REPORT INFORMATION
  Report Type: Spontaneous
  Country: DE (occurrence: DE)
  Receive Date: 20150320
  Receipt Date: 20150320
  Transmission Date: 20150721
  Serious: Yes (Other)
  Sender: FDA-Public Use
  Company Number: DE-MYLANLABS-2015M1007910

PATIENT

DRUGS (2)
  1. FLUANXOL                           /00109702/ [Concomitant]
     Active Substance: FLUPENTIXOL
     Indication: PSYCHOTIC DISORDER
     Dosage: UNK (ABOUT 10 TO 15 YEARS AGO)
     Route: 048
  2. CITALOPRAM DURA 10MG FILMTABLETTEN [Suspect]
     Active Substance: CITALOPRAM HYDROBROMIDE
     Indication: DEPRESSION
     Dosage: BEGINNING: 1 TABLET ONCE A DAY, CURRENTLY:? TABLET A DAY,SEE COMMENTS
     Route: 048

REACTIONS (4)
  - Dissociative disorder [Not Recovered/Not Resolved]
  - Euphoric mood [Recovered/Resolved]
  - Aphasia [Not Recovered/Not Resolved]
  - Loss of consciousness [Not Recovered/Not Resolved]
